FAERS Safety Report 5986677-8 (Version None)
Quarter: 2008Q4

REPORT INFORMATION
  Report Type: 
  Country: None (occurrence: None)
  Receive Date: 20081203
  Receipt Date: 20081121
  Transmission Date: 20090506
  Serious: Yes (Disabling)
  Sender: FDA-Public Use
  Company Number: 2008SP020679

PATIENT
  Age: 30 Year
  Sex: Female

DRUGS (3)
  1. NASONEX [Suspect]
     Indication: RHINITIS ALLERGIC
     Dosage: UNK
     Dates: start: 20080923, end: 20080925
  2. ZYRTEC [Concomitant]
  3. PETASITES HYBRIDUS [Concomitant]

REACTIONS (2)
  - AGEUSIA [None]
  - ANOSMIA [None]
